FAERS Safety Report 7475152-X (Version None)
Quarter: 2011Q2

REPORT INFORMATION
  Report Type: 
  Country: None (occurrence: None)
  Receive Date: 20110512
  Receipt Date: 20110505
  Transmission Date: 20111010
  Serious: Yes (Other)
  Sender: FDA-Public Use
  Company Number: ES-BRISTOL-MYERS SQUIBB COMPANY-15628209

PATIENT
  Age: 50 Year
  Sex: Female

DRUGS (1)
  1. NYSTATIN [Suspect]
     Indication: OESOPHAGITIS
     Dosage: TOOK 2 TIMES
     Dates: end: 20110313

REACTIONS (3)
  - ORAL PAIN [None]
  - OESOPHAGITIS [None]
  - ABDOMINAL PAIN UPPER [None]
